FAERS Safety Report 11049209 (Version 1)
Quarter: 2015Q2

REPORT INFORMATION
  Report Type: Spontaneous
  Country: CN (occurrence: CN)
  Receive Date: 20150420
  Receipt Date: 20150420
  Transmission Date: 20150821
  Serious: Yes (Hospitalization, Other)
  Sender: FDA-Public Use
  Company Number: CN-PFIZER INC-2015128285

PATIENT
  Age: 57 Year
  Sex: Female
  Weight: 50 kg

DRUGS (1)
  1. LIPITOR [Suspect]
     Active Substance: ATORVASTATIN CALCIUM
     Indication: HYPERLIPIDAEMIA
     Dosage: 10 MG, 1X/DAY
     Route: 048
     Dates: start: 20140921, end: 20141021

REACTIONS (5)
  - Hepatic function abnormal [Recovering/Resolving]
  - Drug-induced liver injury [Recovering/Resolving]
  - Swelling face [Unknown]
  - Oedema peripheral [Unknown]
  - Asthenia [Unknown]

NARRATIVE: CASE EVENT DATE: 201409
